FAERS Safety Report 9704534 (Version 2)
Quarter: 2013Q4

REPORT INFORMATION
  Report Type: Spontaneous
  Country: JP (occurrence: JP)
  Receive Date: 20131122
  Receipt Date: 20131122
  Transmission Date: 20140711
  Serious: Yes (Hospitalization, Other)
  Sender: FDA-Public Use
  Company Number: JP-AMGEN-JPNSP2013072397

PATIENT
  Age: 64 Year
  Sex: Male

DRUGS (5)
  1. ENBREL [Suspect]
     Indication: RHEUMATOID ARTHRITIS
     Dosage: AT 25 MG EVERY TWO WEEKS
     Route: 058
     Dates: start: 20130601, end: 2013
  2. ENBREL [Suspect]
     Dosage: 50 MG, QWK
     Route: 058
     Dates: start: 2013
  3. PREDONINE                          /00016201/ [Concomitant]
     Dosage: UNK
     Route: 048
  4. BUCILLAMINE [Concomitant]
     Dosage: UNK
     Route: 048
  5. AZULFIDINE [Concomitant]
     Dosage: UNK
     Route: 048

REACTIONS (2)
  - Respiratory disorder [Not Recovered/Not Resolved]
  - Rheumatoid arthritis [Unknown]
